FAERS Safety Report 5884665-3 (Version None)
Quarter: 2008Q3

REPORT INFORMATION
  Report Type: 
  Country: None (occurrence: None)
  Receive Date: 20080916
  Receipt Date: 20080907
  Transmission Date: 20090109
  Serious: Yes (Death, Other)
  Sender: FDA-Public Use
  Company Number: JP-BRISTOL-MYERS SQUIBB COMPANY-14299754

PATIENT
  Age: 62 Year
  Sex: Female

DRUGS (3)
  1. ENDOXAN [Suspect]
     Indication: BREAST CANCER STAGE I
     Route: 065
     Dates: start: 20071129, end: 20080314
  2. FARMORUBICIN [Suspect]
     Indication: BREAST CANCER STAGE I
     Route: 065
     Dates: start: 20071129, end: 20080314
  3. FEMARA [Concomitant]
     Indication: BREAST CANCER
     Route: 065
     Dates: start: 20080401, end: 20080502

REACTIONS (4)
  - CARDIAC FAILURE [None]
  - LIVER DISORDER [None]
  - MULTI-ORGAN FAILURE [None]
  - RENAL FAILURE [None]
